FAERS Safety Report 9511567 (Version 1)
Quarter: 2013Q3

REPORT INFORMATION
  Report Type: Spontaneous
  Country: CH (occurrence: None)
  Receive Date: 20130906
  Receipt Date: 20130906
  Transmission Date: 20140515
  Serious: Yes (Other)
  Sender: FDA-Public Use
  Company Number: 20130472

PATIENT
  Age: 24 Year
  Sex: Female

DRUGS (4)
  1. FERINJECT [Suspect]
     Indication: IRON DEFICIENCY
     Route: 042
     Dates: start: 20030703, end: 20130802
  2. ANADIN (PARACETAMOL, ASPIRIN, CAFFEINE, QUININE SULPHATE) [Concomitant]
  3. RAMIPRIL (RAMIPRIL) [Concomitant]
  4. INSULIN [Concomitant]

REACTIONS (9)
  - Blood alkaline phosphatase increased [None]
  - Alanine aminotransferase increased [None]
  - Abdominal pain [None]
  - Headache [None]
  - Dysgeusia [None]
  - Vomiting [None]
  - Abdominal discomfort [None]
  - Migraine [None]
  - Urinary tract infection [None]
